FAERS Safety Report 17062568 (Version 3)
Quarter: 2019Q4

REPORT INFORMATION
  Report Type: Report from Study
  Country: ES (occurrence: ES)
  Receive Date: 20191122
  Receipt Date: 20191230
  Transmission Date: 20200122
  Serious: Yes (Hospitalization)
  Sender: FDA-Public Use
  Company Number: ES-PFIZER INC-2019503283

PATIENT
  Age: 72 Year
  Sex: Male

DRUGS (6)
  1. MIRTAZAPINE. [Concomitant]
     Active Substance: MIRTAZAPINE
     Dosage: 30 MILLIGRAM, DAILY
     Route: 048
     Dates: start: 201807
  2. BALZAK [Concomitant]
     Active Substance: AMLODIPINE BESYLATE\OLMESARTAN MEDOXOMIL
     Indication: HYPERTENSION
     Dosage: 40 MILLIGRAM, DAILY
     Route: 048
     Dates: start: 20181217, end: 20190804
  3. APIXABAN [Interacting]
     Active Substance: APIXABAN
     Dosage: 5 MILLIGRAM, DAILY
     Route: 048
     Dates: start: 201812, end: 20190803
  4. VENLAFAXINE HCL [Suspect]
     Active Substance: VENLAFAXINE HYDROCHLORIDE
     Dosage: 37.5 MILLIGRAM, DAILY
     Route: 048
     Dates: start: 201302
  5. BIRESP SPIROMAX [Concomitant]
     Active Substance: BUDESONIDE\FORMOTEROL FUMARATE
     Indication: CHRONIC OBSTRUCTIVE PULMONARY DISEASE
     Dosage: 320 MILLIGRAM
     Route: 055
     Dates: start: 20180706, end: 20190804
  6. APIXABAN [Interacting]
     Active Substance: APIXABAN
     Indication: CEREBROVASCULAR ACCIDENT PROPHYLAXIS
     Dosage: 2.5 MILLIGRAM,DAILY
     Route: 048
     Dates: start: 201706, end: 201812

REACTIONS (2)
  - Epistaxis [Recovered/Resolved]
  - Labelled drug-drug interaction medication error [Unknown]

NARRATIVE: CASE EVENT DATE: 20190803
